FAERS Safety Report 9422146 (Version 3)
Quarter: 2013Q4

REPORT INFORMATION
  Report Type: Report from Study
  Country: ES (occurrence: ES)
  Receive Date: 20130726
  Receipt Date: 20131024
  Transmission Date: 20140711
  Serious: Yes (Other)
  Sender: FDA-Public Use
  Company Number: ES-TEVA-421514USA

PATIENT
  Age: 51 Year
  Sex: Female
  Weight: 55 kg

DRUGS (7)
  1. RITUXIMAB [Suspect]
     Indication: B-CELL LYMPHOMA
     Dates: start: 20130506
  2. RITUXIMAB [Suspect]
     Dates: start: 20130603
  3. ALLOPURINOL [Concomitant]
     Indication: PROPHYLAXIS
  4. METOCLOPRAMIDE [Concomitant]
     Indication: ANTIEMETIC SUPPORTIVE CARE
  5. BENDAMUSTINE [Suspect]
     Indication: B-CELL LYMPHOMA
     Dates: start: 20130408
  6. BENDAMUSTINE [Suspect]
     Dates: start: 20130506
  7. BENDAMUSTINE [Suspect]
     Dates: start: 20130603

REACTIONS (3)
  - Infusion related reaction [Recovered/Resolved]
  - Nausea [Recovered/Resolved]
  - Neutropenia [Recovered/Resolved]
